FAERS Safety Report 26029862 (Version 1)
Quarter: 2025Q4

REPORT INFORMATION
  Report Type: Spontaneous
  Country: GB (occurrence: GB)
  Receive Date: 20251112
  Receipt Date: 20251112
  Transmission Date: 20260117
  Serious: Yes (Other)
  Sender: TEVA
  Company Number: GB-MHRA-TPP11438397C1316143YC1762170941677

PATIENT
  Age: 26 Year
  Sex: Female
  Weight: 81 kg

DRUGS (9)
  1. FLUCONAZOLE [Suspect]
     Active Substance: FLUCONAZOLE
     Indication: Ill-defined disorder
     Dosage: FOR UPTO 4 WEEK
     Route: 065
     Dates: start: 20251030
  2. CLOBETASOL PROPIONATE [Concomitant]
     Active Substance: CLOBETASOL PROPIONATE
     Indication: Ill-defined disorder
     Dosage: APPLY ONCE A DAY
     Dates: start: 20251030
  3. ESTRADIOL\NOMEGESTROL ACETATE [Concomitant]
     Active Substance: ESTRADIOL\NOMEGESTROL ACETATE
     Indication: Ill-defined disorder
     Dosage: TAKE AS DIRECTED BY GYNAE
     Dates: start: 20231002
  4. COCODAMOL [Concomitant]
     Active Substance: ACETAMINOPHEN\CODEINE PHOSPHATE
     Indication: Ill-defined disorder
     Dosage: TAKE 2 TABLETS 4 TIMES/DAY WHEN REQUIRED
     Dates: start: 20250102
  5. NAPROXEN [Concomitant]
     Active Substance: NAPROXEN
     Indication: Ill-defined disorder
     Dosage: TIME INTERVAL: 0.33333333 DAYS: DAILY DOSE: 3 DOSAGE FORM?WITH FOOD WHEN REQUIRED
     Dates: start: 20250102
  6. HYDROMOL [Concomitant]
     Indication: Ill-defined disorder
     Dosage: USE AS SOAP SUBST AND AS LEAVE ON MOISTURISER
     Dates: start: 20250904, end: 20251002
  7. ZERODERM [Concomitant]
     Indication: Ill-defined disorder
     Dosage: USE AS DIRECTED
     Dates: start: 20251010
  8. DICLOFENAC SODIUM [Concomitant]
     Active Substance: DICLOFENAC SODIUM
     Indication: Ill-defined disorder
     Dosage: INSERT ONE AT NIGHT FOR 5 DAYS PER MONTH AS DIR...
     Dates: start: 20231002
  9. BETNOVATE [Concomitant]
     Active Substance: BETAMETHASONE
     Indication: Ill-defined disorder
     Dosage: USE AT NIGHT
     Dates: start: 20250904, end: 20251002

REACTIONS (4)
  - Blister [Recovering/Resolving]
  - Rash erythematous [Recovering/Resolving]
  - Stomatitis [Unknown]
  - Swollen tongue [Recovering/Resolving]

NARRATIVE: CASE EVENT DATE: 20251101
